FAERS Safety Report 7660056-X (Version None)
Quarter: 2011Q3

REPORT INFORMATION
  Report Type: 
  Country: None (occurrence: None)
  Receive Date: 20110805
  Receipt Date: 20110805
  Transmission Date: 20111222
  Serious: No
  Sender: FDA-Public Use
  Company Number: US-PFIZER INC-2011175567

PATIENT
  Sex: Female

DRUGS (2)
  1. PREMARIN [Suspect]
     Dosage: 1.25 MG, 2X/DAY
     Route: 048
     Dates: start: 20110731
  2. PREMARIN [Suspect]
     Indication: OESTROGEN REPLACEMENT THERAPY
     Dosage: 1.25 MG, 1X/DAY
     Route: 048
     Dates: start: 20080101, end: 20110701

REACTIONS (4)
  - ASTHENIA [None]
  - NIGHT SWEATS [None]
  - EMOTIONAL DISORDER [None]
  - HORMONE LEVEL ABNORMAL [None]
